FAERS Safety Report 22853799 (Version 3)
Quarter: 2023Q4

REPORT INFORMATION
  Report Type: Spontaneous
  Country: FR (occurrence: FR)
  Receive Date: 20230823
  Receipt Date: 20231031
  Transmission Date: 20240110
  Serious: Yes (Death, Other)
  Sender: FDA-Public Use
  Company Number: FR-002147023-NVSC2023FR182217

PATIENT
  Sex: Female
  Weight: 75 kg

DRUGS (14)
  1. LUTATHERA [Suspect]
     Active Substance: LUTETIUM OXODOTREOTIDE LU-177
     Indication: Small intestine neuroendocrine tumour
     Dosage: 7299 MBQ
     Route: 065
     Dates: start: 20230801
  2. LIRAGLUTIDE [Concomitant]
     Active Substance: LIRAGLUTIDE
     Indication: Product used for unknown indication
     Dosage: 12 IU, IN THE EVENING
     Route: 065
  3. METFORMIN [Concomitant]
     Active Substance: METFORMIN HYDROCHLORIDE
     Indication: Product used for unknown indication
     Dosage: 700 MG, BID
     Route: 065
  4. ESOMEPRAZOLE [Concomitant]
     Active Substance: ESOMEPRAZOLE
     Indication: Product used for unknown indication
     Dosage: 40 MG, BID
     Route: 065
  5. XARELTO [Concomitant]
     Active Substance: RIVAROXABAN
     Indication: Product used for unknown indication
     Dosage: 10 MG, QD
     Route: 065
  6. SOTALOL [Concomitant]
     Active Substance: SOTALOL
     Indication: Product used for unknown indication
     Dosage: 160 MG, QD
     Route: 065
  7. TRIMEBUTINE [Concomitant]
     Active Substance: TRIMEBUTINE
     Indication: Product used for unknown indication
     Dosage: 200 MG, BID
     Route: 065
  8. MORPHINE SULFATE [Concomitant]
     Active Substance: MORPHINE SULFATE
     Indication: Product used for unknown indication
     Dosage: 5 MG, IN THE EVENING
     Route: 065
  9. ACETYLLEUCINE [Concomitant]
     Active Substance: ACETYLLEUCINE
     Indication: Product used for unknown indication
     Dosage: 500, BID
     Route: 065
  10. MEBEVERINE [Concomitant]
     Active Substance: MEBEVERINE
     Indication: Product used for unknown indication
     Dosage: 200, TID
     Route: 065
  11. LETROZOLE [Concomitant]
     Active Substance: LETROZOLE
     Indication: Product used for unknown indication
     Dosage: 2.5 MG, QD
     Route: 065
  12. LYSINE [Concomitant]
     Active Substance: LYSINE
     Indication: Product used for unknown indication
     Dosage: 25 G
     Route: 065
  13. ARGININE [Concomitant]
     Active Substance: ARGININE
     Indication: Product used for unknown indication
     Dosage: 25 G
     Route: 065
  14. ONDANSETRON [Concomitant]
     Active Substance: ONDANSETRON
     Indication: Product used for unknown indication
     Dosage: 8 MG
     Route: 042

REACTIONS (12)
  - Death [Fatal]
  - Hypokalaemia [Unknown]
  - Nausea [Recovered/Resolved]
  - Hyperchloraemia [Unknown]
  - Hypophosphataemia [Unknown]
  - Asthenia [Unknown]
  - Diarrhoea [Unknown]
  - Flushing [Unknown]
  - Abdominal pain upper [Unknown]
  - Vomiting [Unknown]
  - Abdominal tenderness [Unknown]
  - Off label use [Unknown]

NARRATIVE: CASE EVENT DATE: 20230801
